FAERS Safety Report 18495678 (Version 2)
Quarter: 2020Q4

REPORT INFORMATION
  Report Type: Spontaneous
  Country: CA (occurrence: CA)
  Receive Date: 20201112
  Receipt Date: 20201202
  Transmission Date: 20210114
  Serious: Yes (Other)
  Sender: FDA-Public Use
  Company Number: CA-PFIZER INC-2020443124

PATIENT
  Age: 62 Year
  Sex: Female

DRUGS (4)
  1. OXYNEO [Concomitant]
     Active Substance: OXYCODONE
     Dosage: 30 MG, 2X/DAY
     Route: 048
     Dates: start: 2010
  2. XELJANZ [Suspect]
     Active Substance: TOFACITINIB CITRATE
     Indication: RHEUMATOID ARTHRITIS
     Dosage: 5 MG, 2X/DAY
     Route: 048
     Dates: start: 20200804
  3. ESOMEPRAZOLE/NAPROXEN [Concomitant]
     Dosage: UNK
     Route: 065
     Dates: start: 202001
  4. NAPROXEN. [Concomitant]
     Active Substance: NAPROXEN
     Dosage: UNK
     Dates: start: 2020

REACTIONS (2)
  - Meniscus injury [Unknown]
  - Fall [Unknown]

NARRATIVE: CASE EVENT DATE: 202010
